FAERS Safety Report 5267536-5 (Version None)
Quarter: 2007Q1

REPORT INFORMATION
  Report Type: 
  Country: None (occurrence: None)
  Receive Date: 20061213
  Receipt Date: 20030709
  Transmission Date: 20070707
  Serious: No
  Sender: FDA-Public Use
  Company Number: 2003UW08690

PATIENT
  Age: 78 Year
  Sex: Female
  Weight: 77.1115 kg

DRUGS (15)
  1. NOLVADEX [Suspect]
     Dosage: 20 MG PO
     Route: 048
     Dates: start: 20020901, end: 20030401
  2. NOLVADEX [Suspect]
     Dosage: 20 MG PO
     Route: 048
     Dates: start: 20030709
  3. COZAAR [Concomitant]
  4. FOLIC ACID [Concomitant]
  5. TORSEMIDE [Concomitant]
  6. POTASSIUM ACETATE [Concomitant]
  7. IRON [Concomitant]
  8. ASCORBIC ACID [Concomitant]
  9. VITAMIN E [Concomitant]
  10. SYNTHROID [Concomitant]
  11. DANAZOL [Concomitant]
  12. OSCAL [Concomitant]
  13. OCUVITE [Concomitant]
  14. TYLENOL [Concomitant]
  15. BUTISOL [Concomitant]

REACTIONS (2)
  - CATARACT [None]
  - COLOUR BLINDNESS [None]
